FAERS Safety Report 23779319 (Version 2)
Quarter: 2024Q3

REPORT INFORMATION
  Report Type: Spontaneous
  Country: US (occurrence: US)
  Receive Date: 20240424
  Receipt Date: 20240816
  Transmission Date: 20241017
  Serious: No
  Sender: MYLAN
  Company Number: US-MYLANLABS-2024M1030300

PATIENT
  Sex: Female
  Weight: 72.57 kg

DRUGS (1)
  1. CLONIDINE TRANSDERMAL SYSTEM [Suspect]
     Active Substance: CLONIDINE
     Indication: Hypertension
     Dosage: 0.2 MILLIGRAM, QD (ONCE A WEEK)
     Route: 062

REACTIONS (5)
  - Application site pain [Unknown]
  - Application site rash [Unknown]
  - Application site swelling [Unknown]
  - Application site erythema [Recovering/Resolving]
  - Application site pruritus [Unknown]
